FAERS Safety Report 23204620 (Version 2)
Quarter: 2023Q4

REPORT INFORMATION
  Report Type: Report from Study
  Country: EG (occurrence: EG)
  Receive Date: 20231120
  Receipt Date: 20231204
  Transmission Date: 20240109
  Serious: Yes (Other)
  Sender: FDA-Public Use
  Company Number: EG-002147023-NVSC2023EG244733

PATIENT
  Age: 59 Year
  Sex: Male

DRUGS (12)
  1. ENTRESTO [Suspect]
     Active Substance: SACUBITRIL\VALSARTAN
     Indication: Cardiac failure
     Dosage: 1 DOSAGE FORM, BID
     Route: 048
     Dates: start: 20230904
  2. ENTRESTO [Suspect]
     Active Substance: SACUBITRIL\VALSARTAN
     Dosage: 2 DOSAGE FORM, BID
     Route: 048
  3. CARVEDILOL [Concomitant]
     Active Substance: CARVEDILOL
     Indication: Prophylaxis
     Dosage: 25 MG, BID (STARTED 5 DAYS AGO)
     Route: 048
  4. CORDARONE [Concomitant]
     Active Substance: AMIODARONE HYDROCHLORIDE
     Indication: Prophylaxis
     Dosage: 0.5 DOSAGE FORM, QD (200MG, EXCEPT THURSDAYS AND FRIDAYS, STARTED MONTH AND HALF AGO)
     Route: 048
  5. PLAVIX [Concomitant]
     Active Substance: CLOPIDOGREL BISULFATE
     Indication: Anticoagulant therapy
     Dosage: 75 MG, QD (2YEARS AGO)
     Route: 048
  6. FERROTRON [Concomitant]
     Indication: Haemoglobin decreased
     Dosage: UNK UNK, QD (3 DAYS AGO)
     Route: 048
  7. NEUROTON [Concomitant]
     Indication: Vitamin supplementation
     Dosage: UNK UNK, QD (YEARS AGO AS LONG HE CAN^T REMEMBER EXACT TIME)
     Route: 048
  8. ASPIRIN [Concomitant]
     Active Substance: ASPIRIN
     Indication: Anticoagulant therapy
     Dosage: 100 MG, QD (5YEARS AGO)
     Route: 048
  9. NICORANDIL [Concomitant]
     Active Substance: NICORANDIL
     Indication: Arterial stenosis
     Dosage: 10 MG, BID (STARTED 2YEARS AGO)
     Route: 048
  10. DAPAGLIFLOZIN [Concomitant]
     Active Substance: DAPAGLIFLOZIN
     Indication: Prophylaxis
     Dosage: 10 MG, QD (STARTED 4 OR 5 MONTHS AGO)
     Route: 048
  11. CHOLEROSE [Concomitant]
     Indication: Lipids abnormal
     Dosage: 40 MG, QD (STARTED 4 OR 5 YEARS)
     Route: 048
  12. VILDAGLIPTIN [Concomitant]
     Active Substance: VILDAGLIPTIN
     Indication: Diabetes mellitus
     Dosage: 50 MG, QD (STARTED 3 OR 4 DAYS AGO)
     Route: 048

REACTIONS (4)
  - Renal impairment [Unknown]
  - Coronary artery stenosis [Unknown]
  - Hiccups [Unknown]
  - Off label use [Unknown]

NARRATIVE: CASE EVENT DATE: 20231111
